FAERS Safety Report 8142389-6 (Version None)
Quarter: 2012Q1

REPORT INFORMATION
  Report Type: 
  Country: None (occurrence: None)
  Receive Date: 20120216
  Receipt Date: 20120209
  Transmission Date: 20120608
  Serious: Yes (Hospitalization)
  Sender: FDA-Public Use
  Company Number: JP-VERTEX PHARMACEUTICALS INC.-AE-2012-002184

PATIENT
  Age: 59 Year
  Sex: Male

DRUGS (10)
  1. REBETOL [Concomitant]
     Indication: HEPATITIS C
     Route: 048
     Dates: end: 20120130
  2. EPADEL [Concomitant]
     Route: 048
     Dates: start: 20111227
  3. TELAVIC (TELAPREVIR) [Suspect]
     Route: 048
     Dates: start: 20120110
  4. PEGINTERFERON ALFA-2B [Concomitant]
     Indication: HEPATITIS C
     Route: 051
  5. PEGINTERFERON ALFA-2B [Concomitant]
     Route: 051
     Dates: start: 20120130
  6. TELAVIC (TELAPREVIR) [Suspect]
     Indication: HEPATITIS C
     Route: 048
     Dates: start: 20111227, end: 20120109
  7. REBETOL [Concomitant]
     Route: 048
     Dates: start: 20120131
  8. PEGINTERFERON ALFA-2B [Concomitant]
     Route: 051
     Dates: start: 20120103
  9. PEGINTERFERON ALFA-2B [Concomitant]
     Route: 051
     Dates: start: 20120116
  10. DOGMATYL [Concomitant]
     Route: 048
     Dates: start: 20111227

REACTIONS (2)
  - RENAL IMPAIRMENT [None]
  - PLATELET COUNT DECREASED [None]
